FAERS Safety Report 4862569-2 (Version None)
Quarter: 2005Q4

REPORT INFORMATION
  Report Type: 
  Country: None (occurrence: None)
  Receive Date: 20051221
  Receipt Date: 20051219
  Transmission Date: 20060501
  Serious: Yes (Disabling)
  Sender: FDA-Public Use
  Company Number: GR-GLAXOSMITHKLINE-B0404244A

PATIENT
  Age: 27 Year
  Sex: Male

DRUGS (1)
  1. SEROXAT [Suspect]
     Indication: DEPRESSION
     Route: 048
     Dates: start: 20051207, end: 20051220

REACTIONS (1)
  - ERECTILE DYSFUNCTION [None]
